FAERS Safety Report 7596934-X (Version None)
Quarter: 2011Q3

REPORT INFORMATION
  Report Type: 
  Country: None (occurrence: None)
  Receive Date: 20110708
  Receipt Date: 20110705
  Transmission Date: 20111222
  Serious: Yes (Other)
  Sender: FDA-Public Use
  Company Number: US-SANOFI-AVENTIS-2011SA042807

PATIENT
  Age: 80 Year
  Sex: Female

DRUGS (12)
  1. GLIPIZIDE [Concomitant]
     Dosage: TAKEN IN THE MORNING
  2. ULTRACET [Concomitant]
  3. LASIX [Concomitant]
  4. POTASSIUM [Concomitant]
  5. WARFARIN SODIUM [Concomitant]
  6. GABAPENTIN [Concomitant]
  7. TRAMADOL [Concomitant]
  8. MULTAQ [Suspect]
     Indication: ATRIAL FIBRILLATION
     Route: 048
     Dates: start: 20110428
  9. ESOMEPRAZOLE MAGNESIUM [Concomitant]
     Dosage: TAKEN IN THE MORNING
  10. THYROID TAB [Concomitant]
     Dosage: TAKEN IN THE MORNING
  11. VITAMIN TAB [Concomitant]
  12. HYDROCHLOROTHIAZIDE [Concomitant]

REACTIONS (6)
  - HEART RATE IRREGULAR [None]
  - FEELING ABNORMAL [None]
  - ATRIAL FIBRILLATION [None]
  - DYSPNOEA [None]
  - CONDITION AGGRAVATED [None]
  - SLEEP DISORDER [None]
